FAERS Safety Report 21641759 (Version 2)
Quarter: 2022Q4

REPORT INFORMATION
  Report Type: Spontaneous
  Country: IL (occurrence: IL)
  Receive Date: 20221125
  Receipt Date: 20221212
  Transmission Date: 20230112
  Serious: Yes (Other)
  Sender: FDA-Public Use
  Company Number: IL-009507513-2211ISR007674

PATIENT
  Age: 88 Year
  Sex: Female

DRUGS (2)
  1. MOLNUPIRAVIR [Suspect]
     Active Substance: MOLNUPIRAVIR
     Indication: COVID-19 treatment
     Dosage: RECEIVED TWO DOSES
     Route: 048
     Dates: start: 20221119
  2. MOLNUPIRAVIR [Suspect]
     Active Substance: MOLNUPIRAVIR
     Dosage: RECEIVED THE THIRD DOSE
     Route: 048
     Dates: start: 20221120

REACTIONS (12)
  - Syncope [Unknown]
  - Blood pressure decreased [Unknown]
  - Feeling abnormal [Unknown]
  - Asthenia [Unknown]
  - Vertigo [Unknown]
  - Dizziness [Recovered/Resolved]
  - Taste disorder [Unknown]
  - Confusional state [Unknown]
  - Fear [Unknown]
  - Overdose [Unknown]
  - Inappropriate schedule of product administration [Unknown]
  - Inappropriate schedule of product administration [Unknown]

NARRATIVE: CASE EVENT DATE: 20220101
